FAERS Safety Report 8210483-7 (Version None)
Quarter: 2012Q1

REPORT INFORMATION
  Report Type: 
  Country: None (occurrence: None)
  Receive Date: 20120314
  Receipt Date: 20110922
  Transmission Date: 20120608
  Serious: No
  Sender: FDA-Public Use
  Company Number: US-ASTRAZENECA-2011SE33913

PATIENT
  Age: 62 Year
  Sex: Female

DRUGS (13)
  1. LORTAB [Concomitant]
  2. LIPITOR [Concomitant]
  3. TOPROL-XL [Suspect]
     Route: 048
  4. EFFEXOR [Concomitant]
  5. DURAGESIC-100 [Concomitant]
  6. VITAMIN D [Concomitant]
  7. LASIX [Concomitant]
  8. NOVOLOG [Concomitant]
  9. NOVOLIN INSULIN [Concomitant]
  10. ASPIRIN [Concomitant]
  11. SINEMET [Concomitant]
  12. VERAPAMIL [Concomitant]
  13. TOPROL-XL [Suspect]
     Route: 048

REACTIONS (15)
  - BLOOD CHOLESTEROL INCREASED [None]
  - MOVEMENT DISORDER [None]
  - WRONG DRUG ADMINISTERED [None]
  - OBESITY [None]
  - VISION BLURRED [None]
  - OSTEOARTHRITIS [None]
  - ARTHRITIS [None]
  - DIABETES MELLITUS [None]
  - ANXIETY [None]
  - NEUROPATHY PERIPHERAL [None]
  - FATIGUE [None]
  - PAIN [None]
  - DERMATITIS [None]
  - HYPERTENSION [None]
  - GASTROOESOPHAGEAL REFLUX DISEASE [None]
